FAERS Safety Report 19061779 (Version 2)
Quarter: 2021Q2

REPORT INFORMATION
  Report Type: Spontaneous
  Country: US (occurrence: US)
  Receive Date: 20210326
  Receipt Date: 20210406
  Transmission Date: 20210717
  Serious: Yes (Other)
  Sender: FDA-Public Use
  Company Number: US-EPICPHARMA-2020EPC00300

PATIENT
  Sex: Female

DRUGS (1)
  1. SULINDAC. [Suspect]
     Active Substance: SULINDAC
     Indication: ADENOMATOUS POLYPOSIS COLI
     Dosage: 150 MG, 1X/DAY
     Route: 048

REACTIONS (2)
  - Exposure during pregnancy [Recovered/Resolved]
  - Abortion spontaneous [Recovered/Resolved]
